FAERS Safety Report 6742735-1 (Version None)
Quarter: 2010Q2

REPORT INFORMATION
  Report Type: 
  Country: None (occurrence: None)
  Receive Date: 20100526
  Receipt Date: 20100303
  Transmission Date: 20101027
  Serious: No
  Sender: FDA-Public Use
  Company Number: US-ABBOTT-10P-163-0630609-00

PATIENT
  Sex: Male
  Weight: 99.88 kg

DRUGS (6)
  1. ZEMPLAR [Suspect]
     Indication: RENAL FAILURE CHRONIC
     Route: 048
     Dates: start: 20060101
  2. ZEMPLAR [Suspect]
     Indication: HYPERPARATHYROIDISM SECONDARY
  3. SODIUM BICARBONATE [Concomitant]
     Indication: NEPHROPATHY
     Route: 048
  4. TUMS EX [Concomitant]
     Indication: MINERAL SUPPLEMENTATION
     Route: 048
  5. DOCUSATE [Concomitant]
     Indication: CONSTIPATION PROPHYLAXIS
  6. LABETALOL HCL [Concomitant]
     Indication: HYPERTENSION
     Dosage: 1.5 TABS BID
     Route: 048

REACTIONS (4)
  - ANAEMIA [None]
  - BLOOD URINE PRESENT [None]
  - DYSURIA [None]
  - URINARY TRACT INFECTION [None]
